FAERS Safety Report 10950750 (Version 1)
Quarter: 2015Q1

REPORT INFORMATION
  Report Type: Spontaneous
  Country: NL (occurrence: NL)
  Receive Date: 20150324
  Receipt Date: 20150324
  Transmission Date: 20150721
  Serious: Yes (Other)
  Sender: FDA-Public Use
  Company Number: NL-MYLANLABS-2015M1009366

PATIENT

DRUGS (2)
  1. IDARUBICIN [Suspect]
     Active Substance: IDARUBICIN
     Indication: ACUTE MYELOID LEUKAEMIA
     Dosage: 10 MG/M2, DAYS 1, 3, 5
     Route: 065
  2. CYTARABINE. [Suspect]
     Active Substance: CYTARABINE
     Indication: ACUTE MYELOID LEUKAEMIA
     Dosage: 100 MG/M2, DAY 1-10
     Route: 065

REACTIONS (4)
  - Febrile neutropenia [Recovered/Resolved]
  - Neutropenic colitis [Recovered/Resolved]
  - Hyperbilirubinaemia [Recovered/Resolved]
  - Cholecystitis [Recovered/Resolved]
